FAERS Safety Report 18479385 (Version 1)
Quarter: 2020Q4

REPORT INFORMATION
  Report Type: Spontaneous
  Country: US (occurrence: US)
  Receive Date: 20201106
  Receipt Date: 20201106
  Transmission Date: 20210114
  Serious: Yes (Other)
  Sender: FDA-Public Use
  Company Number: None

PATIENT
  Age: 81 Year
  Sex: Female

DRUGS (1)
  1. CAPECITABINE. [Suspect]
     Active Substance: CAPECITABINE
     Indication: BREAST CANCER
     Dates: start: 20201006

REACTIONS (4)
  - Product distribution issue [None]
  - Product storage error [None]
  - Vaginal haemorrhage [None]
  - Diarrhoea [None]

NARRATIVE: CASE EVENT DATE: 20201101
